FAERS Safety Report 10087044 (Version 1)
Quarter: 2014Q2

REPORT INFORMATION
  Report Type: Spontaneous
  Country: FR (occurrence: FR)
  Receive Date: 20140418
  Receipt Date: 20140418
  Transmission Date: 20141212
  Serious: Yes (Hospitalization)
  Sender: FDA-Public Use
  Company Number: FR-ABBVIE-14P-056-1227295-00

PATIENT
  Age: 56 Year
  Sex: Male

DRUGS (25)
  1. DEPAKOTE [Suspect]
     Indication: PRODUCT USED FOR UNKNOWN INDICATION
     Route: 048
     Dates: start: 20140306
  2. LEPTICUR [Suspect]
     Indication: PRODUCT USED FOR UNKNOWN INDICATION
     Route: 048
     Dates: start: 20140319
  3. CYAMEMAZINE [Suspect]
     Indication: PRODUCT USED FOR UNKNOWN INDICATION
     Route: 048
     Dates: start: 20140311, end: 20140312
  4. CYAMEMAZINE [Suspect]
     Route: 048
     Dates: start: 20140313, end: 20140321
  5. CYAMEMAZINE [Suspect]
     Route: 048
     Dates: start: 20140322, end: 20140324
  6. CYAMEMAZINE [Suspect]
     Route: 048
     Dates: start: 20140325, end: 20140331
  7. CYAMEMAZINE [Suspect]
     Route: 048
     Dates: start: 20140401, end: 20140401
  8. ZOPICLONE [Suspect]
     Indication: PRODUCT USED FOR UNKNOWN INDICATION
     Route: 048
     Dates: end: 20140310
  9. ZOPICLONE [Suspect]
     Route: 048
     Dates: start: 20140311, end: 20140331
  10. ZOPICLONE [Suspect]
     Route: 048
     Dates: start: 20140401
  11. LYSANXIA [Suspect]
     Indication: PRODUCT USED FOR UNKNOWN INDICATION
     Route: 048
  12. LYSANXIA [Suspect]
     Route: 048
     Dates: start: 20140310
  13. LOXAPAC [Suspect]
     Indication: PRODUCT USED FOR UNKNOWN INDICATION
     Route: 048
  14. LOXAPAC [Suspect]
     Route: 048
     Dates: start: 20140324
  15. THERALENE [Suspect]
     Indication: PRODUCT USED FOR UNKNOWN INDICATION
     Route: 048
     Dates: end: 20140309
  16. THERALENE [Suspect]
     Route: 048
     Dates: start: 20140310, end: 20140330
  17. THERALENE [Suspect]
     Route: 048
     Dates: start: 20140331, end: 20140331
  18. THERALENE [Suspect]
     Route: 048
     Dates: start: 20140401, end: 20140401
  19. THERALENE [Suspect]
     Route: 048
     Dates: start: 20140402, end: 20140402
  20. XEROQUEL [Suspect]
     Indication: PRODUCT USED FOR UNKNOWN INDICATION
     Route: 048
  21. BI-PROFENID [Concomitant]
     Indication: PRODUCT USED FOR UNKNOWN INDICATION
  22. CONTALAX [Concomitant]
     Indication: PRODUCT USED FOR UNKNOWN INDICATION
  23. DUPHALAC [Concomitant]
     Indication: PRODUCT USED FOR UNKNOWN INDICATION
  24. FENOFIBRATE [Concomitant]
     Indication: PRODUCT USED FOR UNKNOWN INDICATION
  25. LANSOYL [Concomitant]
     Indication: PRODUCT USED FOR UNKNOWN INDICATION

REACTIONS (3)
  - Disorientation [Not Recovered/Not Resolved]
  - Memory impairment [Not Recovered/Not Resolved]
  - Confusional state [Not Recovered/Not Resolved]
